FAERS Safety Report 7020968-7 (Version None)
Quarter: 2010Q3

REPORT INFORMATION
  Report Type: 
  Country: None (occurrence: None)
  Receive Date: 20100929
  Receipt Date: 20100928
  Transmission Date: 20110219
  Serious: Yes (Disabling)
  Sender: FDA-Public Use
  Company Number: US-CEPHALON-2010004416

PATIENT
  Sex: Male

DRUGS (3)
  1. TREANDA [Suspect]
     Indication: NON-HODGKIN'S LYMPHOMA
     Route: 042
  2. TREANDA [Suspect]
     Route: 042
  3. CYTOXAN [Suspect]

REACTIONS (1)
  - CYSTITIS HAEMORRHAGIC [None]
